FAERS Safety Report 14563361 (Version 1)
Quarter: 2018Q1

REPORT INFORMATION
  Report Type: Spontaneous
  Country: US (occurrence: US)
  Receive Date: 20180222
  Receipt Date: 20180222
  Transmission Date: 20180509
  Serious: Yes (Hospitalization)
  Sender: FDA-Public Use
  Company Number: US-GLAXOSMITHKLINE-US2018028290

PATIENT
  Sex: Female

DRUGS (13)
  1. BENLYSTA [Suspect]
     Active Substance: BELIMUMAB
     Indication: SYSTEMIC LUPUS ERYTHEMATOSUS
     Dosage: UNK
     Route: 042
     Dates: start: 201702
  2. PROAIR HFA [Concomitant]
     Active Substance: ALBUTEROL SULFATE
  3. HYDROCODONE [Concomitant]
     Active Substance: HYDROCODONE
  4. DIAMOX SEQUELS [Concomitant]
     Active Substance: ACETAZOLAMIDE
  5. ZOFRAN [Concomitant]
     Active Substance: ONDANSETRON HYDROCHLORIDE
  6. NORTRIPTYLINE [Concomitant]
     Active Substance: NORTRIPTYLINE
  7. ADVAIR DISKUS [Concomitant]
     Active Substance: FLUTICASONE PROPIONATE\SALMETEROL XINAFOATE
  8. LISINOPRIL. [Concomitant]
     Active Substance: LISINOPRIL
  9. MECLIZINE [Concomitant]
     Active Substance: MECLIZINE HYDROCHLORIDE
  10. AZATHIOPRINE. [Concomitant]
     Active Substance: AZATHIOPRINE
  11. ADVAIR DISKUS [Suspect]
     Active Substance: FLUTICASONE PROPIONATE\SALMETEROL XINAFOATE
     Indication: ASTHMA
     Dosage: UNK UNK, BID
  12. PREDNISONE. [Concomitant]
     Active Substance: PREDNISONE
  13. PLAQUENIL [Concomitant]
     Active Substance: HYDROXYCHLOROQUINE SULFATE

REACTIONS (8)
  - Fluid retention [Recovering/Resolving]
  - Pyrexia [Recovering/Resolving]
  - Dehydration [Recovering/Resolving]
  - Nausea [Recovered/Resolved]
  - Chest pain [Recovering/Resolving]
  - Hypoacusis [Recovering/Resolving]
  - Influenza [Recovering/Resolving]
  - Middle ear effusion [Unknown]
